FAERS Safety Report 6285313-3 (Version None)
Quarter: 2009Q3

REPORT INFORMATION
  Report Type: 
  Country: None (occurrence: None)
  Receive Date: 20090727
  Receipt Date: 20090720
  Transmission Date: 20100115
  Serious: Yes (Life-Threatening, Hospitalization, Other)
  Sender: FDA-Public Use
  Company Number: NO-ELI_LILLY_AND_COMPANY-NO200907002015

PATIENT
  Sex: Male
  Weight: 74 kg

DRUGS (2)
  1. HUMALOG MIX 75/25 [Suspect]
     Indication: TYPE 1 DIABETES MELLITUS
     Dosage: 81.6 IU, DAILY (1/D)
     Route: 058
     Dates: start: 20061102
  2. HUMALOG MIX 75/25 [Suspect]
     Dosage: 3 BOLUS DOSES OF 5 IU EACH WITHIN A TIME SPAN OF 10 MINUTES (AT 12:08, 12:14 AND 12:18 IN MORNING)
     Route: 058
     Dates: start: 20090613

REACTIONS (3)
  - CONVULSION [None]
  - DRUG ADMINISTRATION ERROR [None]
  - HYPOGLYCAEMIC COMA [None]
